FAERS Safety Report 5807214-4 (Version None)
Quarter: 2008Q3

REPORT INFORMATION
  Report Type: 
  Country: None (occurrence: None)
  Receive Date: 20080711
  Receipt Date: 20080704
  Transmission Date: 20090109
  Serious: Yes (Life-Threatening)
  Sender: FDA-Public Use
  Company Number: B0528109B

PATIENT

DRUGS (1)
  1. CLAMOXYL [Suspect]
     Dosage: 1G PER DAY
     Dates: start: 20080506, end: 20080506

REACTIONS (3)
  - ARRHYTHMIA [None]
  - BRADYCARDIA [None]
  - DRUG EXPOSURE DURING PREGNANCY [None]
